FAERS Safety Report 7530989-3 (Version None)
Quarter: 2011Q2

REPORT INFORMATION
  Report Type: 
  Country: None (occurrence: None)
  Receive Date: 20110608
  Receipt Date: 20090606
  Transmission Date: 20111010
  Serious: Yes (Death, Hospitalization, Other)
  Sender: FDA-Public Use
  Company Number: US-BAYER-200922408NA

PATIENT
  Age: 64 Year
  Sex: Female
  Weight: 56.689 kg

DRUGS (36)
  1. TRASYLOL [Suspect]
     Indication: AORTIC SURGERY
  2. LEVAQUIN [Concomitant]
     Indication: PRODUCT USED FOR UNKNOWN INDICATION
     Dosage: 500 MG, QD
     Route: 042
     Dates: start: 20040929
  3. CALCIUM CARBONATE [Concomitant]
     Indication: PRODUCT USED FOR UNKNOWN INDICATION
  4. PROTONIX [Concomitant]
     Indication: PRODUCT USED FOR UNKNOWN INDICATION
     Dosage: UNK
  5. PRECEDEX [Concomitant]
     Indication: PRODUCT USED FOR UNKNOWN INDICATION
     Dosage: UNK
     Dates: start: 20041001
  6. SODIUM BICARBONATE [Concomitant]
     Indication: PRODUCT USED FOR UNKNOWN INDICATION
     Dosage: UNK
     Dates: start: 20041001
  7. RED BLOOD CELLS [Concomitant]
     Indication: PRODUCT USED FOR UNKNOWN INDICATION
     Dosage: 300 ML, UNK
     Route: 042
     Dates: start: 20041001
  8. TRASYLOL [Suspect]
     Indication: STERNOTOMY
     Dosage: 1 ML (INITIAL DOSE), UNK
     Route: 042
     Dates: start: 20041001, end: 20041001
  9. FENTANYL [Concomitant]
     Indication: PRODUCT USED FOR UNKNOWN INDICATION
     Dosage: 100 ?G, UNK
     Route: 042
     Dates: start: 20041001
  10. POTASSIUM CHLORIDE [Concomitant]
     Indication: PRODUCT USED FOR UNKNOWN INDICATION
     Dosage: 10 MEQ, UNK
     Dates: start: 20041001
  11. POTASSIUM CHLORIDE [Concomitant]
     Indication: PRODUCT USED FOR UNKNOWN INDICATION
     Dosage: UNK
     Dates: start: 20041001
  12. TISSEEL KIT [Concomitant]
     Indication: PRODUCT USED FOR UNKNOWN INDICATION
     Dosage: UNK
     Dates: start: 20041002
  13. CRYOPRECIPITATES [Concomitant]
     Indication: PRODUCT USED FOR UNKNOWN INDICATION
     Dosage: 10 UNK
     Route: 042
     Dates: start: 20041001
  14. PLATELETS [Concomitant]
     Indication: PRODUCT USED FOR UNKNOWN INDICATION
     Dosage: 2 UNK
     Dates: start: 20041001
  15. TRASYLOL [Suspect]
     Indication: AORTIC VALVE REPLACEMENT
     Dosage: 193 ML (LOADING DOSE), UNK
     Route: 042
     Dates: start: 20041001
  16. SEVOFLURANE [Concomitant]
     Indication: PRODUCT USED FOR UNKNOWN INDICATION
     Dosage: UNK
     Dates: start: 20041001
  17. DDAVP [Concomitant]
     Indication: PRODUCT USED FOR UNKNOWN INDICATION
     Dosage: 20 ?G, UNK
     Dates: start: 20041001
  18. TRASYLOL [Suspect]
     Indication: AORTIC VALVE DISEASE
     Dosage: 40 CC
     Dates: start: 20041001
  19. LOVENOX [Concomitant]
     Dosage: 55 MG, Q12HR
     Route: 058
     Dates: start: 20040928, end: 20040929
  20. DIPRIVAN [Concomitant]
     Indication: PRODUCT USED FOR UNKNOWN INDICATION
     Dosage: UNK
     Dates: start: 20041001
  21. INS [INSULIN] [Concomitant]
     Indication: PRODUCT USED FOR UNKNOWN INDICATION
     Dosage: UNK
     Dates: start: 20041001
  22. HEPARIN [Concomitant]
     Indication: PRODUCT USED FOR UNKNOWN INDICATION
     Dosage: 25,000 U/D5W 500 ML/STANDARD DRIP-RATE PER PROTCOL
     Route: 041
  23. LIDOCAINE [Concomitant]
     Indication: PRODUCT USED FOR UNKNOWN INDICATION
     Dosage: UNK
     Dates: start: 20041001
  24. MIDAZOLAM [Concomitant]
     Indication: PRODUCT USED FOR UNKNOWN INDICATION
     Dosage: 2 MG, UNK
     Route: 042
     Dates: start: 20041001
  25. AMIDATE [Concomitant]
     Indication: PRODUCT USED FOR UNKNOWN INDICATION
     Dosage: 20 MG, UNK
     Dates: start: 20041001
  26. COUMADIN [Concomitant]
     Indication: PRODUCT USED FOR UNKNOWN INDICATION
     Dosage: 2.5 -7.5 MG/DAILY
     Route: 048
  27. VECURONIUM BROMIDE [Concomitant]
     Indication: PRODUCT USED FOR UNKNOWN INDICATION
     Dosage: UNK
     Dates: start: 20041001
  28. ZINACEF [Concomitant]
     Indication: PRODUCT USED FOR UNKNOWN INDICATION
     Dosage: UNK
     Dates: start: 20041001
  29. MAGNESIUM SULFATE [Concomitant]
     Indication: PRODUCT USED FOR UNKNOWN INDICATION
     Dosage: UNK
     Dates: start: 20041001
  30. PLASMA [Concomitant]
     Indication: PRODUCT USED FOR UNKNOWN INDICATION
     Dosage: 4 U, UNK
     Route: 042
     Dates: start: 20041001
  31. LOVENOX [Concomitant]
     Dosage: 60 MG, UNK
     Route: 058
     Dates: start: 20040922
  32. HEPARIN [Concomitant]
     Dosage: UNK
     Dates: start: 20041001
  33. LASIX [Concomitant]
     Indication: PRODUCT USED FOR UNKNOWN INDICATION
     Dosage: 40 MG, UNK
     Route: 042
     Dates: start: 20041001
  34. DOBUTREX [Concomitant]
     Indication: PRODUCT USED FOR UNKNOWN INDICATION
     Dosage: UNK
     Dates: start: 20041001
  35. MANNITOL [Concomitant]
     Indication: PRODUCT USED FOR UNKNOWN INDICATION
     Dosage: UNK
     Dates: start: 20041001
  36. PROTAMINE SULFATE [Concomitant]
     Indication: PRODUCT USED FOR UNKNOWN INDICATION
     Dosage: UNK
     Dates: start: 20041001

REACTIONS (14)
  - EMOTIONAL DISTRESS [None]
  - UNEVALUABLE EVENT [None]
  - RENAL FAILURE ACUTE [None]
  - RENAL INJURY [None]
  - ANHEDONIA [None]
  - STRESS [None]
  - DEATH [None]
  - ANXIETY [None]
  - FEAR [None]
  - PAIN [None]
  - RENAL FAILURE [None]
  - MULTI-ORGAN FAILURE [None]
  - RENAL IMPAIRMENT [None]
  - INJURY [None]
